FAERS Safety Report 21764417 (Version 2)
Quarter: 2022Q4

REPORT INFORMATION
  Report Type: Report from Study
  Country: US (occurrence: US)
  Receive Date: 20221222
  Receipt Date: 20221225
  Transmission Date: 20230112
  Serious: Yes (Hospitalization, Other)
  Sender: FDA-Public Use
  Company Number: US-ABBVIE-4246085

PATIENT
  Age: 75 Year
  Sex: Male
  Weight: 91.72 kg

DRUGS (2)
  1. HUMIRA [Suspect]
     Active Substance: ADALIMUMAB
     Indication: Psoriatic arthropathy
     Dosage: CF, FORM STRENGTH: 40 MILLIGRAM
     Route: 058
     Dates: start: 2012
  2. HUMIRA [Suspect]
     Active Substance: ADALIMUMAB
     Indication: Ankylosing spondylitis
     Dosage: CF
     Route: 058
     Dates: start: 20221208

REACTIONS (6)
  - Spinal operation [Recovering/Resolving]
  - Fall [Recovered/Resolved]
  - Weight decreased [Unknown]
  - Back injury [Recovering/Resolving]
  - Nervous system disorder [Recovering/Resolving]
  - Lumbar vertebral fracture [Recovering/Resolving]

NARRATIVE: CASE EVENT DATE: 20220922
